FAERS Safety Report 8033276-2 (Version None)
Quarter: 2012Q1

REPORT INFORMATION
  Report Type: 
  Country: None (occurrence: None)
  Receive Date: 20120110
  Receipt Date: 20120104
  Transmission Date: 20120608
  Serious: Yes (Hospitalization, Other)
  Sender: FDA-Public Use
  Company Number: US-BAYER-2012-002282

PATIENT
  Age: 23 Year
  Sex: Female
  Weight: 92.971 kg

DRUGS (9)
  1. DROSPIRENONE AND ETHINYL ESTRADIOL [Suspect]
     Indication: PREMENSTRUAL SYNDROME
  2. YAZ [Suspect]
     Indication: CONTRACEPTION
     Dosage: UNK
     Dates: start: 20080401, end: 20091201
  3. YAZ [Suspect]
     Indication: ACNE
  4. YAZ [Suspect]
     Indication: PREMENSTRUAL SYNDROME
  5. BENTYL [Concomitant]
     Indication: IRRITABLE BOWEL SYNDROME
     Dosage: 10 MG, PRN
  6. DROSPIRENONE AND ETHINYL ESTRADIOL [Suspect]
     Indication: ACNE
  7. MERIDIA [Concomitant]
     Indication: OBESITY
     Dosage: UNK
     Dates: start: 20040101, end: 20090101
  8. DROSPIRENONE AND ETHINYL ESTRADIOL [Suspect]
     Indication: CONTRACEPTION
     Dosage: UNK
     Dates: start: 20080401, end: 20091201
  9. PHENTERMINE [Concomitant]
     Indication: OBESITY
     Dosage: UNK
     Dates: start: 20040101, end: 20090101

REACTIONS (7)
  - CHEST PAIN [None]
  - CHOLECYSTITIS ACUTE [None]
  - NAUSEA [None]
  - DYSPEPSIA [None]
  - SCAR [None]
  - CHOLECYSTECTOMY [None]
  - EATING DISORDER [None]
